FAERS Safety Report 6466370-8 (Version None)
Quarter: 2009Q4

REPORT INFORMATION
  Report Type: 
  Country: None (occurrence: None)
  Receive Date: 20091201
  Receipt Date: 20091201
  Transmission Date: 20100525
  Serious: Yes (Other)
  Sender: FDA-Public Use
  Company Number: None

PATIENT
  Age: 11 Year
  Sex: Female
  Weight: 49.8957 kg

DRUGS (2)
  1. SINGULAIR [Suspect]
     Indication: ASTHMA
     Dosage: 5 MG DAILY PO
     Route: 048
     Dates: start: 20090917, end: 20091004
  2. SINGULAIR [Suspect]
     Indication: SEASONAL ALLERGY
     Dosage: 5 MG DAILY PO
     Route: 048
     Dates: start: 20090917, end: 20091004

REACTIONS (3)
  - DEPRESSION [None]
  - FLAT AFFECT [None]
  - SOCIAL AVOIDANT BEHAVIOUR [None]
